FAERS Safety Report 8033944-2 (Version None)
Quarter: 2012Q1

REPORT INFORMATION
  Report Type: 
  Country: None (occurrence: None)
  Receive Date: 20120110
  Receipt Date: 20111227
  Transmission Date: 20120608
  Serious: Yes (Hospitalization)
  Sender: FDA-Public Use
  Company Number: DE-CELGENEUS-062-21880-11123512

PATIENT
  Age: 71 Year
  Sex: Female

DRUGS (9)
  1. COTRIM DS [Concomitant]
     Indication: PROPHYLAXIS
     Dosage: 1720 MILLIGRAM
     Route: 048
     Dates: start: 20111215
  2. DEXAMETHASONE [Suspect]
     Indication: MULTIPLE MYELOMA
     Dosage: 40 MILLIGRAM
     Route: 048
     Dates: start: 20111215, end: 20111222
  3. TRAMADOL HCL [Concomitant]
     Dosage: 200 MILLIGRAM
     Route: 048
  4. REVLIMID [Suspect]
     Indication: MULTIPLE MYELOMA
     Dosage: 25 MILLIGRAM
     Route: 048
     Dates: start: 20111215, end: 20111225
  5. ACYCLOVIR [Concomitant]
     Indication: PROPHYLAXIS
     Dosage: 1600 MILLIGRAM
     Route: 048
     Dates: start: 20111215
  6. LASIX [Concomitant]
     Dosage: 40 MILLIGRAM
     Route: 048
  7. ENOXAPARIN SODIUM [Concomitant]
     Indication: THROMBOSIS PROPHYLAXIS
     Dosage: .4 MILLILITER
     Route: 058
     Dates: start: 20111215
  8. LEVOFLOXACIN [Concomitant]
     Dosage: 500 MILLIGRAM
     Route: 048
     Dates: start: 20111222
  9. MICTONORM [Concomitant]
     Dosage: 30 MILLIGRAM
     Route: 048

REACTIONS (5)
  - FALL [None]
  - HAEMOGLOBIN DECREASED [None]
  - SEROMA [None]
  - RADIUS FRACTURE [None]
  - FEMUR FRACTURE [None]
